FAERS Safety Report 7127033-9 (Version None)
Quarter: 2010Q4

REPORT INFORMATION
  Report Type: 
  Country: None (occurrence: None)
  Receive Date: 20101129
  Receipt Date: 20100205
  Transmission Date: 20110411
  Serious: No
  Sender: FDA-Public Use
  Company Number: US-PFIZER INC-2009314782

PATIENT
  Sex: Male
  Weight: 77.1 kg

DRUGS (3)
  1. VIAGRA [Suspect]
     Dosage: 50 MG, AS NEEDED
     Dates: start: 20080101
  2. LISINOPRIL [Suspect]
     Indication: HYPERTENSION
     Dosage: 10 MG, 1X/DAY
     Dates: end: 20091217
  3. LEVOTHYROXINE [Concomitant]
     Indication: THYROID DISORDER
     Dosage: 0.075 MG, UNK

REACTIONS (4)
  - CONDITION AGGRAVATED [None]
  - COUGH [None]
  - DRUG EFFECT DECREASED [None]
  - HAEMORRHOIDS [None]
